FAERS Safety Report 12232336 (Version 1)
Quarter: 2016Q2

REPORT INFORMATION
  Report Type: Spontaneous
  Country: SE (occurrence: SE)
  Receive Date: 20160401
  Receipt Date: 20160401
  Transmission Date: 20160815
  Serious: Yes (Other)
  Sender: FDA-Public Use
  Company Number: SE-SUNOVION-2016SUN000823

PATIENT

DRUGS (6)
  1. WARAN [Concomitant]
     Active Substance: WARFARIN SODIUM
     Dosage: UNK
  2. DIGOXIN. [Concomitant]
     Active Substance: DIGOXIN
     Dosage: UNK
  3. LASIX [Concomitant]
     Active Substance: FUROSEMIDE
     Dosage: UNK
  4. BISOPROLOL [Concomitant]
     Active Substance: BISOPROLOL
     Dosage: UNK
  5. MONTELUKAST [Suspect]
     Active Substance: MONTELUKAST SODIUM
     Indication: ASTHMA
     Dosage: UNK
     Route: 065
     Dates: end: 201510
  6. ALVESCO [Suspect]
     Active Substance: CICLESONIDE
     Indication: ASTHMA
     Dosage: UNK
     Route: 055
     Dates: end: 201510

REACTIONS (2)
  - Suicidal ideation [Unknown]
  - Rash [Unknown]

NARRATIVE: CASE EVENT DATE: 201510
